FAERS Safety Report 5036144-3 (Version None)
Quarter: 2006Q2

REPORT INFORMATION
  Report Type: 
  Country: None (occurrence: None)
  Receive Date: 20060531
  Receipt Date: 20060501
  Transmission Date: 20061013
  Serious: No
  Sender: FDA-Public Use
  Company Number: PHEH2006US02582

PATIENT
  Age: 55 Year
  Sex: Female

DRUGS (3)
  1. EXJADE [Suspect]
     Indication: BLOOD IRON INCREASED
     Dosage: SEE IMAGE
     Dates: start: 20060101
  2. EXJADE [Suspect]
     Indication: BLOOD IRON INCREASED
     Dosage: SEE IMAGE
     Dates: start: 20060201
  3. DESFERAL [Suspect]
     Indication: BLOOD IRON INCREASED
     Dosage: SEE IMAGE

REACTIONS (4)
  - BLOOD GLUCOSE INCREASED [None]
  - FATIGUE [None]
  - RENAL PAIN [None]
  - SERUM FERRITIN INCREASED [None]
